FAERS Safety Report 7679490-7 (Version None)
Quarter: 2011Q3

REPORT INFORMATION
  Report Type: 
  Country: None (occurrence: None)
  Receive Date: 20110812
  Receipt Date: 20110812
  Transmission Date: 20111222
  Serious: No
  Sender: FDA-Public Use
  Company Number: None

PATIENT
  Sex: Female

DRUGS (1)
  1. DILTIAZEM [Suspect]
     Dosage: 1
     Route: 048

REACTIONS (3)
  - ASTHENIA [None]
  - PRODUCT SUBSTITUTION ISSUE [None]
  - PALPITATIONS [None]
